FAERS Safety Report 7927037 (Version 2)
Quarter: 2013Q2

REPORT INFORMATION
  Report Type: Spontaneous
  Country: US (occurrence: US)
  Receive Date: 20110502
  Receipt Date: 20130514
  Transmission Date: 20140414
  Serious: No
  Sender: FDA-Public Use
  Company Number: US-ASTRAZENECA-2011SE04502

PATIENT
  Age: 59 Year
  Sex: Female

DRUGS (4)
  1. NEXIUM [Suspect]
     Route: 048
  2. OMEPRAZOLE [Suspect]
     Route: 048
  3. COZAAV [Concomitant]
  4. ZOCOR [Concomitant]

REACTIONS (4)
  - Gastrooesophageal reflux disease [Unknown]
  - Drug intolerance [Unknown]
  - Malaise [Unknown]
  - Incorrect dose administered [Unknown]
